FAERS Safety Report 6730521-8 (Version None)
Quarter: 2010Q2

REPORT INFORMATION
  Report Type: 
  Country: None (occurrence: None)
  Receive Date: 20100514
  Receipt Date: 20100503
  Transmission Date: 20101027
  Serious: Yes (Hospitalization)
  Sender: FDA-Public Use
  Company Number: 238676K09USA

PATIENT
  Age: 38 Year
  Sex: Female

DRUGS (6)
  1. REBIF [Suspect]
     Indication: MULTIPLE SCLEROSIS
     Dosage: 44 MCG, 3 IN 1 WK, SUBCUTANEOUS
     Route: 058
     Dates: start: 20070129, end: 20090501
  2. BENADRYL [Concomitant]
  3. ADVIL LIQUI-GELS [Concomitant]
  4. UNSPECIFIED INTRAVENOUS STEROIDS (CORTICOSTEROIDS) [Concomitant]
  5. STEROIDS (CORTICOSTEROIDS) ORAL [Concomitant]
  6. STEROIDS (INTRAVENOUS) [Concomitant]

REACTIONS (3)
  - DYSPEPSIA [None]
  - HEPATIC FIBROSIS [None]
  - HEPATITIS [None]
